FAERS Safety Report 7776946-3 (Version None)
Quarter: 2011Q3

REPORT INFORMATION
  Report Type: 
  Country: None (occurrence: None)
  Receive Date: 20110926
  Receipt Date: 20110911
  Transmission Date: 20111222
  Serious: Yes (Other)
  Sender: FDA-Public Use
  Company Number: US-BAYER-2011-086059

PATIENT
  Age: 51 Year
  Sex: Female
  Weight: 102.4 kg

DRUGS (4)
  1. VICODIN [Concomitant]
  2. ALEVE (CAPLET) [Suspect]
     Indication: ANALGESIC THERAPY
     Route: 048
  3. MULTI-VITAMINS [Concomitant]
  4. WELLBUTRIN [Concomitant]

REACTIONS (6)
  - ABDOMINAL PAIN LOWER [None]
  - FAECES DISCOLOURED [None]
  - NAUSEA [None]
  - ENTEROCOLITIS INFECTIOUS [None]
  - ADRENAL ADENOMA [None]
  - DIARRHOEA HAEMORRHAGIC [None]
